FAERS Safety Report 7951745-8 (Version None)
Quarter: 2011Q4

REPORT INFORMATION
  Report Type: 
  Country: None (occurrence: None)
  Receive Date: 20111130
  Receipt Date: 20111130
  Transmission Date: 20120403
  Serious: Yes (Hospitalization)
  Sender: FDA-Public Use
  Company Number: None

PATIENT
  Sex: Female

DRUGS (1)
  1. XELODA [Suspect]
     Dosage: 500MG (3 TABS) BID 1 WK ON/1WK OFF PO
     Route: 048
     Dates: start: 20111102

REACTIONS (2)
  - HYPERSENSITIVITY [None]
  - SWELLING FACE [None]
